FAERS Safety Report 6142620-2 (Version None)
Quarter: 2009Q2

REPORT INFORMATION
  Report Type: 
  Country: None (occurrence: None)
  Receive Date: 20090403
  Receipt Date: 20090326
  Transmission Date: 20091009
  Serious: Yes (Hospitalization)
  Sender: FDA-Public Use
  Company Number: US-BAYER-200916757NA

PATIENT
  Age: 42 Year
  Sex: Female
  Weight: 142 kg

DRUGS (12)
  1. SOTALOL HYDROCHLORIDE [Suspect]
     Indication: VENTRICULAR TACHYCARDIA
     Dosage: TOTAL DAILY DOSE: 480 MG
     Route: 048
     Dates: start: 20061006
  2. METROGEL [Suspect]
     Indication: ROSACEA
     Route: 061
     Dates: start: 20090224
  3. DOXYCYCLINE [Suspect]
     Indication: DRUG USE FOR UNKNOWN INDICATION
     Dosage: TOTAL DAILY DOSE: 40 MG
     Route: 048
     Dates: start: 20090224
  4. METOPROLOL [Concomitant]
     Indication: VENTRICULAR TACHYCARDIA
     Dosage: TOTAL DAILY DOSE: 200 MG
     Route: 048
     Dates: start: 20061006
  5. FUROSEMIDE [Concomitant]
     Indication: VENTRICULAR TACHYCARDIA
     Dosage: TOTAL DAILY DOSE: 80 MG
     Route: 048
     Dates: start: 20061006
  6. METFORMIN HCL [Concomitant]
     Indication: DIABETES MELLITUS
     Dosage: TOTAL DAILY DOSE: 2000 MG
     Dates: start: 20051025
  7. PRAVASTATIN [Concomitant]
     Indication: HYPERCHOLESTEROLAEMIA
     Dosage: TOTAL DAILY DOSE: 0.5 MG
     Route: 048
     Dates: start: 20061006
  8. HYDROXIZINE [Concomitant]
     Indication: ANXIETY
     Dosage: TOTAL DAILY DOSE: 25 MG
     Route: 048
     Dates: start: 20061006
  9. HUMULIN R [Concomitant]
     Indication: DIABETES MELLITUS
     Dosage: TOTAL DAILY DOSE: 24 U
     Route: 058
     Dates: start: 20081201
  10. HUMALOG [Concomitant]
     Indication: DIABETES MELLITUS
     Dosage: TOTAL DAILY DOSE: 12 U
     Route: 058
     Dates: start: 20081201
  11. HUMALOG [Concomitant]
     Dosage: TOTAL DAILY DOSE: 14 U
     Route: 058
     Dates: start: 20081201
  12. HUMALOG [Concomitant]
     Dosage: TOTAL DAILY DOSE: 16 U
     Route: 058
     Dates: start: 20081201

REACTIONS (1)
  - ABDOMINAL PAIN [None]
